FAERS Safety Report 21386514 (Version 1)
Quarter: 2022Q3

REPORT INFORMATION
  Report Type: Spontaneous
  Country: DE (occurrence: DE)
  Receive Date: 20220928
  Receipt Date: 20220928
  Transmission Date: 20221026
  Serious: Yes (Other)
  Sender: FDA-Public Use
  Company Number: DE-GLAXOSMITHKLINE-DE2022EME128020

PATIENT

DRUGS (1)
  1. FLUTICASONE PROPIONATE\SALMETEROL XINAFOATE [Suspect]
     Active Substance: FLUTICASONE PROPIONATE\SALMETEROL XINAFOATE
     Indication: Product used for unknown indication
     Dosage: UNK

REACTIONS (7)
  - Cerebrovascular accident [Unknown]
  - Dyspnoea [Unknown]
  - Cough [Unknown]
  - Wheelchair user [Unknown]
  - Gait inability [Unknown]
  - Pain [Unknown]
  - Bedridden [Unknown]

NARRATIVE: CASE EVENT DATE: 20220502
